FAERS Safety Report 8953492 (Version 3)
Quarter: 2013Q2

REPORT INFORMATION
  Report Type: Report from Study
  Country: DE (occurrence: DE)
  Receive Date: 20121206
  Receipt Date: 20130515
  Transmission Date: 20140414
  Serious: Yes (Hospitalization)
  Sender: FDA-Public Use
  Company Number: DE-GLAXOSMITHKLINE-B0841882A

PATIENT
  Age: 50 Year
  Sex: Female
  Weight: 49.5 kg

DRUGS (4)
  1. TYVERB [Suspect]
     Indication: BREAST NEOPLASM
     Dosage: 750MG PER DAY
     Route: 048
     Dates: start: 20120905, end: 20121025
  2. MYOCET [Suspect]
     Indication: BREAST NEOPLASM
     Dosage: 31.5MG WEEKLY
     Route: 042
     Dates: start: 20120905, end: 20121112
  3. PACLITAXEL [Suspect]
     Indication: BREAST NEOPLASM
     Dosage: 126MG WEEKLY
     Route: 042
     Dates: start: 20120905, end: 20121112
  4. HERCEPTIN [Suspect]
     Indication: BREAST NEOPLASM
     Dosage: 303MG EVERY 3 WEEKS
     Route: 042
     Dates: start: 20120905, end: 20121112

REACTIONS (1)
  - Mucosal inflammation [Recovered/Resolved]
